FAERS Safety Report 20473034 (Version 1)
Quarter: 2022Q1

REPORT INFORMATION
  Report Type: Spontaneous
  Country: US (occurrence: US)
  Receive Date: 20220215
  Receipt Date: 20220215
  Transmission Date: 20220424
  Serious: Yes (Other)
  Sender: FDA-Public Use
  Company Number: US-SUN PHARMACEUTICAL INDUSTRIES LTD-2019R1-228733

PATIENT
  Age: 37 Year
  Sex: Female

DRUGS (2)
  1. LURASIDONE [Suspect]
     Active Substance: LURASIDONE
     Indication: Depression
     Dosage: 40 MILLIGRAM, DAILY
     Route: 065
  2. LURASIDONE [Suspect]
     Active Substance: LURASIDONE
     Dosage: 60 MILLIGRAM, DAILY
     Route: 065

REACTIONS (1)
  - Mania [Unknown]
